FAERS Safety Report 10557196 (Version 1)
Quarter: 2014Q4

REPORT INFORMATION
  Report Type: Spontaneous
  Country: US (occurrence: US)
  Receive Date: 20141031
  Receipt Date: 20141031
  Transmission Date: 20150529
  Serious: Yes (Hospitalization)
  Sender: FDA-Public Use
  Company Number: US-JNJFOC-20141017525

PATIENT
  Sex: Female

DRUGS (1)
  1. XARELTO [Suspect]
     Active Substance: RIVAROXABAN
     Indication: DEEP VEIN THROMBOSIS
     Route: 048
     Dates: start: 20130910, end: 20131126

REACTIONS (6)
  - Hypoaesthesia [Unknown]
  - Subarachnoid haemorrhage [Unknown]
  - Back pain [Unknown]
  - Abasia [Unknown]
  - Visual acuity reduced [Unknown]
  - Muscular weakness [Unknown]

NARRATIVE: CASE EVENT DATE: 201311
